FAERS Safety Report 15944133 (Version 2)
Quarter: 2019Q1

REPORT INFORMATION
  Report Type: Report from Study
  Country: RO (occurrence: RO)
  Receive Date: 20190211
  Receipt Date: 20190304
  Transmission Date: 20190417
  Serious: Yes (Other)
  Sender: FDA-Public Use
  Company Number: RO-ROCHE-1939702

PATIENT
  Age: 53 Year
  Sex: Female
  Weight: 70 kg

DRUGS (1)
  1. ROACTEMRA [Suspect]
     Active Substance: TOCILIZUMAB
     Indication: RHEUMATOID ARTHRITIS
     Route: 042
     Dates: start: 20160210

REACTIONS (9)
  - Nasopharyngitis [Unknown]
  - Myocarditis [Unknown]
  - Decreased appetite [Not Recovered/Not Resolved]
  - Leukopenia [Not Recovered/Not Resolved]
  - Weight increased [Unknown]
  - White blood cell count abnormal [Unknown]
  - Asthenia [Unknown]
  - Immunodeficiency [Not Recovered/Not Resolved]
  - Liver function test increased [Recovered/Resolved]

NARRATIVE: CASE EVENT DATE: 2018
